FAERS Safety Report 25472494 (Version 1)
Quarter: 2025Q2

REPORT INFORMATION
  Report Type: Spontaneous
  Country: IN (occurrence: IN)
  Receive Date: 20250624
  Receipt Date: 20250624
  Transmission Date: 20250717
  Serious: Yes (Other)
  Sender: MYLAN
  Company Number: IN-MYLANLABS-2025M1052897

PATIENT
  Sex: Male

DRUGS (40)
  1. METHOTREXATE [Suspect]
     Active Substance: METHOTREXATE
     Indication: B-cell type acute leukaemia
  2. METHOTREXATE [Suspect]
     Active Substance: METHOTREXATE
     Indication: Leukaemia recurrent
     Route: 065
  3. METHOTREXATE [Suspect]
     Active Substance: METHOTREXATE
     Indication: Nervous system disorder
     Route: 065
  4. METHOTREXATE [Suspect]
     Active Substance: METHOTREXATE
  5. DOXORUBICIN [Suspect]
     Active Substance: DOXORUBICIN
     Indication: B-cell type acute leukaemia
  6. DOXORUBICIN [Suspect]
     Active Substance: DOXORUBICIN
     Indication: Leukaemia recurrent
     Route: 065
  7. DOXORUBICIN [Suspect]
     Active Substance: DOXORUBICIN
     Indication: Nervous system disorder
     Route: 065
  8. DOXORUBICIN [Suspect]
     Active Substance: DOXORUBICIN
  9. CYTARABINE [Suspect]
     Active Substance: CYTARABINE
     Indication: B-cell type acute leukaemia
  10. CYTARABINE [Suspect]
     Active Substance: CYTARABINE
     Route: 065
  11. CYTARABINE [Suspect]
     Active Substance: CYTARABINE
     Route: 065
  12. CYTARABINE [Suspect]
     Active Substance: CYTARABINE
  13. ETOPOSIDE [Suspect]
     Active Substance: ETOPOSIDE
     Indication: B-cell type acute leukaemia
  14. ETOPOSIDE [Suspect]
     Active Substance: ETOPOSIDE
     Indication: Leukaemia recurrent
     Route: 065
  15. ETOPOSIDE [Suspect]
     Active Substance: ETOPOSIDE
     Indication: Nervous system disorder
     Route: 065
  16. ETOPOSIDE [Suspect]
     Active Substance: ETOPOSIDE
  17. VINCRISTINE [Suspect]
     Active Substance: VINCRISTINE
     Indication: B-cell type acute leukaemia
  18. VINCRISTINE [Suspect]
     Active Substance: VINCRISTINE
     Indication: Leukaemia recurrent
     Route: 065
  19. VINCRISTINE [Suspect]
     Active Substance: VINCRISTINE
     Indication: Nervous system disorder
     Route: 065
  20. VINCRISTINE [Suspect]
     Active Substance: VINCRISTINE
  21. DAUNORUBICIN [Suspect]
     Active Substance: DAUNORUBICIN
     Indication: B-cell type acute leukaemia
  22. DAUNORUBICIN [Suspect]
     Active Substance: DAUNORUBICIN
     Route: 065
  23. DAUNORUBICIN [Suspect]
     Active Substance: DAUNORUBICIN
     Route: 065
  24. DAUNORUBICIN [Suspect]
     Active Substance: DAUNORUBICIN
  25. ASPARAGINASE [Suspect]
     Active Substance: ASPARAGINASE
     Indication: B-cell type acute leukaemia
  26. ASPARAGINASE [Suspect]
     Active Substance: ASPARAGINASE
     Indication: Leukaemia recurrent
     Route: 065
  27. ASPARAGINASE [Suspect]
     Active Substance: ASPARAGINASE
     Indication: Nervous system disorder
     Route: 065
  28. ASPARAGINASE [Suspect]
     Active Substance: ASPARAGINASE
  29. CYCLOPHOSPHAMIDE [Suspect]
     Active Substance: CYCLOPHOSPHAMIDE
     Indication: B-cell type acute leukaemia
  30. CYCLOPHOSPHAMIDE [Suspect]
     Active Substance: CYCLOPHOSPHAMIDE
     Route: 065
  31. CYCLOPHOSPHAMIDE [Suspect]
     Active Substance: CYCLOPHOSPHAMIDE
     Route: 065
  32. CYCLOPHOSPHAMIDE [Suspect]
     Active Substance: CYCLOPHOSPHAMIDE
  33. MERCAPTOPURINE [Suspect]
     Active Substance: MERCAPTOPURINE
     Indication: B-cell type acute leukaemia
  34. MERCAPTOPURINE [Suspect]
     Active Substance: MERCAPTOPURINE
     Indication: Leukaemia recurrent
     Route: 065
  35. MERCAPTOPURINE [Suspect]
     Active Substance: MERCAPTOPURINE
     Indication: Nervous system disorder
     Route: 065
  36. MERCAPTOPURINE [Suspect]
     Active Substance: MERCAPTOPURINE
  37. IFOSFAMIDE [Suspect]
     Active Substance: IFOSFAMIDE
     Indication: B-cell type acute leukaemia
  38. IFOSFAMIDE [Suspect]
     Active Substance: IFOSFAMIDE
     Indication: Leukaemia recurrent
     Route: 065
  39. IFOSFAMIDE [Suspect]
     Active Substance: IFOSFAMIDE
     Indication: Nervous system disorder
     Route: 065
  40. IFOSFAMIDE [Suspect]
     Active Substance: IFOSFAMIDE

REACTIONS (1)
  - Acute myeloid leukaemia [Recovered/Resolved]
